FAERS Safety Report 9236886 (Version 1)
Quarter: 2013Q2

REPORT INFORMATION
  Report Type: Spontaneous
  Country: FR (occurrence: None)
  Receive Date: 20130415
  Receipt Date: 20130415
  Transmission Date: 20140414
  Serious: Yes (Life-Threatening, Hospitalization)
  Sender: FDA-Public Use
  Company Number: FR-2013-0973

PATIENT
  Age: 52 Year
  Sex: Female

DRUGS (3)
  1. NAVELBINE (VINORELBINE TARTRATE) INFUSION [Suspect]
     Indication: LUNG NEOPLASM MALIGNANT
     Route: 042
     Dates: start: 20130218, end: 20130218
  2. NAVELBINE (VINORELBINE TARTRATE) INFUSION [Suspect]
     Indication: LUNG NEOPLASM MALIGNANT
     Route: 042
     Dates: start: 20130218, end: 20130218
  3. CISPLATIN (CISPLATIN) [Suspect]
     Indication: LUNG NEOPLASM MALIGNANT
     Route: 042
     Dates: start: 20130218, end: 20130218

REACTIONS (2)
  - Ischaemic stroke [None]
  - Myocardial infarction [None]
